FAERS Safety Report 5021775-7 (Version None)
Quarter: 2006Q2

REPORT INFORMATION
  Report Type: 
  Country: None (occurrence: None)
  Receive Date: 20060605
  Receipt Date: 20060522
  Transmission Date: 20061013
  Serious: Yes (Hospitalization)
  Sender: FDA-Public Use
  Company Number: 2006PV014201

PATIENT
  Age: 69 Year
  Sex: Female
  Weight: 112.0385 kg

DRUGS (25)
  1. BYETTA [Suspect]
     Indication: DIABETES MELLITUS NON-INSULIN-DEPENDENT
     Dosage: SEE IMAGE
     Route: 058
     Dates: start: 20050601, end: 20050701
  2. BYETTA [Suspect]
     Indication: DIABETES MELLITUS NON-INSULIN-DEPENDENT
     Dosage: SEE IMAGE
     Route: 058
     Dates: start: 20050701
  3. LASIX [Concomitant]
  4. LOPRESSOR [Concomitant]
  5. AVANDIA [Concomitant]
  6. NEXIUM [Concomitant]
  7. DIOVAN [Concomitant]
  8. IMDUR [Concomitant]
  9. MAGNESIUM OXIDE [Concomitant]
  10. K-DUR 10 [Concomitant]
  11. LIPITOR [Concomitant]
  12. GLUCOPHAGE [Concomitant]
  13. COUMADIN [Concomitant]
  14. TOPAMAX [Concomitant]
  15. PROZAC [Concomitant]
  16. ZANTAC [Concomitant]
  17. COLACE [Concomitant]
  18. NITRO QUICK [Concomitant]
  19. MINITRAN [Concomitant]
  20. CELEBREX [Concomitant]
  21. AZMACORT [Concomitant]
  22. ARANESP [Concomitant]
  23. FERROUS SULFATE TAB [Concomitant]
  24. FOLIC ACID [Concomitant]
  25. DICYCLOMINE [Concomitant]

REACTIONS (4)
  - ASTHENIA [None]
  - FALL [None]
  - INFECTION [None]
  - WEIGHT DECREASED [None]
